FAERS Safety Report 16437396 (Version 2)
Quarter: 2019Q2

REPORT INFORMATION
  Report Type: Spontaneous
  Country: ES (occurrence: ES)
  Receive Date: 20190615
  Receipt Date: 20190629
  Transmission Date: 20190711
  Serious: Yes (Other)
  Sender: FDA-Public Use
  Company Number: ES-ACCORD-133033

PATIENT
  Age: 68 Year
  Sex: Female

DRUGS (3)
  1. METHYLPREDNISONE [Concomitant]
     Active Substance: METHYLPREDNISOLONE
     Indication: VASCULITIS
     Dates: start: 201806
  2. MYCOPHENOLIC ACID. [Suspect]
     Active Substance: MYCOPHENOLIC ACID
     Indication: VASCULITIS
     Dosage: DRUG RE-INTRODUCED LATER WITH 180 MG / DAY DOSE AND SUBSEQUENTLY WITHDRAWN
     Dates: start: 201806, end: 2018
  3. PREDNISONE. [Concomitant]
     Active Substance: PREDNISONE
     Indication: VASCULITIS
     Dosage: 60 MG / DAY
     Route: 048
     Dates: start: 201806

REACTIONS (3)
  - Hepatitis acute [Recovered/Resolved]
  - Enterococcal infection [Recovered/Resolved]
  - Peritonitis [Recovered/Resolved]

NARRATIVE: CASE EVENT DATE: 201806
